FAERS Safety Report 24255697 (Version 1)
Quarter: 2024Q3

REPORT INFORMATION
  Report Type: Spontaneous
  Country: US (occurrence: None)
  Receive Date: 20240827
  Receipt Date: 20240827
  Transmission Date: 20241016
  Serious: Yes (Hospitalization)
  Sender: Public
  Company Number: None

PATIENT
  Age: 79 Year
  Sex: Female
  Weight: 55.7 kg

DRUGS (1)
  1. PEMBROLIZUMAB [Suspect]
     Active Substance: PEMBROLIZUMAB
     Dates: end: 20220310

REACTIONS (12)
  - Diarrhoea [None]
  - Therapy interrupted [None]
  - Nausea [None]
  - Vomiting [None]
  - Dizziness [None]
  - Tachycardia [None]
  - Blood pressure decreased [None]
  - Blood magnesium decreased [None]
  - Vasogenic cerebral oedema [None]
  - Dehydration [None]
  - Blood creatinine increased [None]
  - Metastases to central nervous system [None]

NARRATIVE: CASE EVENT DATE: 20220408
